FAERS Safety Report 17420785 (Version 1)
Quarter: 2020Q1

REPORT INFORMATION
  Report Type: Other
  Country: HR (occurrence: HR)
  Receive Date: 20200214
  Receipt Date: 20200214
  Transmission Date: 20200409
  Serious: Yes (Hospitalization, Other)
  Sender: FDA-Public Use
  Company Number: HR-CELLTRION INC.-2020HR018775

PATIENT

DRUGS (11)
  1. PRESTILOL [Concomitant]
     Active Substance: BISOPROLOL FUMARATE\PERINDOPRIL ARGININE
     Dosage: 1 DF (STRENGTH: N/AX1 DF = 5 MG BISOPROLOL + 10 MG PERINDOPRIL)
     Route: 048
  2. EMANERA [Concomitant]
     Active Substance: ESOMEPRAZOLE MAGNESIUM
     Dosage: 40 MG (STRENGTH: N/A)
     Route: 048
  3. BRILIQUE [Concomitant]
     Active Substance: TICAGRELOR
     Dosage: STRENGTH: N/A
     Route: 048
  4. MEDROL [Concomitant]
     Active Substance: METHYLPREDNISOLONE
     Dosage: 4 MG (STRENGTH: N/A)
     Route: 048
  5. FOLACIN [FOLIC ACID] [Concomitant]
     Active Substance: FOLIC ACID
     Dosage: 5 MG (STRENGTH: N/A)
     Route: 048
  6. ATORIS [Concomitant]
     Active Substance: ATORVASTATIN CALCIUM
     Dosage: 80 MG (STRENGTH: N/A)
     Route: 048
  7. METOTREKSAT CIPLA [Concomitant]
     Dosage: 10 MG (STRENGTH: N/A)
     Route: 048
  8. ANDOL [Concomitant]
     Active Substance: ASPIRIN
     Dosage: 100 MG (STRENGTH: N/A)
     Route: 048
  9. SALAZOPYRIN EN [Concomitant]
     Active Substance: SULFASALAZINE
     Dosage: 500 MG (STRENGTH: N/A)
     Route: 048
  10. DORETA [Concomitant]
     Active Substance: ACETAMINOPHEN\TRAMADOL HYDROCHLORIDE
     Dosage: 1 DF (STRENGTH: N/AX1 DF = 37,5 MG TRAMADOL + 325 MG PARACETAMOL)
     Route: 048
  11. REMSIMA [Suspect]
     Active Substance: INFLIXIMAB
     Indication: SPONDYLITIS
     Dosage: 400 MG (STRENGTH: N/A)
     Route: 042
     Dates: start: 20190925

REACTIONS (1)
  - Diverticulitis [Recovered/Resolved]

NARRATIVE: CASE EVENT DATE: 20191108
